FAERS Safety Report 23084323 (Version 2)
Quarter: 2023Q4

REPORT INFORMATION
  Report Type: Report from Study
  Country: IT (occurrence: IT)
  Receive Date: 20231019
  Receipt Date: 20231103
  Transmission Date: 20240109
  Serious: Yes (Other)
  Sender: FDA-Public Use
  Company Number: IT-PFIZER INC-PV202300168461

PATIENT

DRUGS (3)
  1. NIRMATRELVIR\RITONAVIR [Suspect]
     Active Substance: NIRMATRELVIR\RITONAVIR
     Indication: COVID-19
     Dosage: [PF-07321332 300 MG]/[RITONAVIR 100 MG]; 2X/DAY
     Route: 048
  2. REMDESIVIR [Suspect]
     Active Substance: REMDESIVIR
     Indication: COVID-19
     Dosage: 200 MG, LOADING DOSE
     Route: 042
  3. REMDESIVIR [Suspect]
     Active Substance: REMDESIVIR
     Dosage: 100 MG, FOR A TOTAL DURATION OF 3, 5, OR 10 DAYS

REACTIONS (1)
  - Hepatotoxicity [Recovered/Resolved]
